FAERS Safety Report 7709842-8 (Version None)
Quarter: 2011Q3

REPORT INFORMATION
  Report Type: 
  Country: None (occurrence: None)
  Receive Date: 20110825
  Receipt Date: 20110819
  Transmission Date: 20111222
  Serious: Yes (Life-Threatening)
  Sender: FDA-Public Use
  Company Number: US-MERCK-1107USA01227

PATIENT
  Age: 70 Year
  Sex: Female
  Weight: 72 kg

DRUGS (4)
  1. LISINOPRIL [Concomitant]
     Route: 065
  2. JANUMET [Suspect]
     Indication: TYPE 2 DIABETES MELLITUS
     Route: 048
     Dates: start: 20110617, end: 20110702
  3. GLYBURIDE [Concomitant]
     Route: 065
  4. SIMVASTATIN [Concomitant]
     Route: 065

REACTIONS (8)
  - MALAISE [None]
  - ABDOMINAL DISTENSION [None]
  - PAIN [None]
  - RENAL FAILURE ACUTE [None]
  - PANCREATITIS [None]
  - RED BLOOD CELL SEDIMENTATION RATE INCREASED [None]
  - DECREASED APPETITE [None]
  - INAPPROPRIATE SCHEDULE OF DRUG ADMINISTRATION [None]
